FAERS Safety Report 15517818 (Version 1)
Quarter: 2018Q4

REPORT INFORMATION
  Report Type: Spontaneous
  Country: SE (occurrence: SE)
  Receive Date: 20181017
  Receipt Date: 20181017
  Transmission Date: 20190205
  Serious: Yes (Hospitalization, Disabling)
  Sender: FDA-Public Use
  Company Number: SE-PFIZER INC-2018422269

PATIENT
  Age: 66 Year
  Sex: Female

DRUGS (4)
  1. CARBOPLATIN. [Suspect]
     Active Substance: CARBOPLATIN
     Indication: MALIGNANT NEOPLASM OF UNKNOWN PRIMARY SITE
     Dosage: 5 COURSES, DOSE ^500^
     Route: 042
     Dates: start: 20160603, end: 20160901
  2. CARBOPLATIN. [Suspect]
     Active Substance: CARBOPLATIN
     Dosage: DOSE ^400^
     Route: 042
     Dates: start: 20170921, end: 2018
  3. PACLITAXEL. [Suspect]
     Active Substance: PACLITAXEL
     Indication: MALIGNANT NEOPLASM OF UNKNOWN PRIMARY SITE
     Dosage: 5 COURSES. DOSE ^280^
     Route: 042
     Dates: start: 20160603, end: 20160901
  4. PACLITAXEL. [Suspect]
     Active Substance: PACLITAXEL
     Dosage: DOSE ^210^
     Route: 042
     Dates: start: 20170921, end: 2018

REACTIONS (1)
  - Chronic obstructive pulmonary disease [Not Recovered/Not Resolved]

NARRATIVE: CASE EVENT DATE: 20160730
